FAERS Safety Report 21482345 (Version 1)
Quarter: 2022Q4

REPORT INFORMATION
  Report Type: Spontaneous
  Country: DE (occurrence: DE)
  Receive Date: 20221020
  Receipt Date: 20221020
  Transmission Date: 20230113
  Serious: Yes (Life-Threatening, Hospitalization, Other)
  Sender: FDA-Public Use
  Company Number: None

PATIENT
  Age: 59 Year
  Sex: Female
  Weight: 86 kg

DRUGS (7)
  1. SIMVASTATIN [Concomitant]
     Active Substance: SIMVASTATIN
     Dosage: 0-0-1
     Route: 048
  2. forxiga 10 mg [Concomitant]
     Dosage: 1-0-0?MEHR ALS 1,5 MONATE
     Route: 048
  3. CANDESARTAN [Concomitant]
     Active Substance: CANDESARTAN
     Dosage: 1-0-0?MEHR ALS 1,5 MONATE
     Route: 048
  4. VENLAFAXINE HYDROCHLORIDE [Suspect]
     Active Substance: VENLAFAXINE HYDROCHLORIDE
     Indication: Depression
     Dosage: 1-0-0?ANWENDUNG SEIT +#252;BER 10 JAHREN
     Route: 048
     Dates: end: 20220909
  5. MARCUMAR [Concomitant]
     Active Substance: PHENPROCOUMON
     Dosage: DOSIERUNG ACH INR, MEHR ALS 1,5 ?MONATE
     Route: 048
  6. BISOPROLOL [Concomitant]
     Active Substance: BISOPROLOL
     Dosage: 1-0-1, MEHR ALS 1,5 MONATE
     Route: 048
  7. TORSEMIDE [Concomitant]
     Active Substance: TORSEMIDE
     Dosage: 1-0-0, NEU IN DER ANWENDUNG
     Route: 048
     Dates: start: 2022

REACTIONS (12)
  - Unresponsive to stimuli [Recovering/Resolving]
  - Cyanosis [Recovering/Resolving]
  - Hyperhidrosis [Recovering/Resolving]
  - Ventricular fibrillation [Recovering/Resolving]
  - Supraventricular extrasystoles [Recovering/Resolving]
  - Ventricular tachycardia [Recovering/Resolving]
  - Electrocardiogram QT prolonged [Recovering/Resolving]
  - Circulatory collapse [Recovering/Resolving]
  - Ventricular extrasystoles [Recovering/Resolving]
  - Sinus rhythm [Recovering/Resolving]
  - Palpitations [Recovering/Resolving]
  - Torsade de pointes [Recovering/Resolving]

NARRATIVE: CASE EVENT DATE: 20220909
